FAERS Safety Report 9161090 (Version 3)
Quarter: 2013Q4

REPORT INFORMATION
  Report Type: Spontaneous
  Country: US (occurrence: US)
  Receive Date: 20130313
  Receipt Date: 20131113
  Transmission Date: 20140711
  Serious: Yes (Death, Hospitalization)
  Sender: FDA-Public Use
  Company Number: US-B.I. PHARMACEUTICALS,INC./RIDGEFIELD-2013-BI-06645BP

PATIENT
  Age: 69 Year
  Sex: Female
  Weight: 53.52 kg

DRUGS (13)
  1. PRADAXA [Suspect]
     Indication: ATRIAL FIBRILLATION
     Dosage: 150 MG
     Dates: start: 20120313, end: 20120710
  2. MULTAQ [Concomitant]
     Dosage: 800 MG
     Route: 048
  3. SYNTHROID [Concomitant]
     Dosage: 125 MCG
     Route: 048
  4. DIAZEPAM [Concomitant]
     Indication: SLEEP DISORDER
     Dosage: 5 MG
     Route: 048
  5. SOMA [Concomitant]
     Dosage: 650 MG
     Route: 048
  6. PROVENTIL HFA [Concomitant]
     Route: 055
     Dates: start: 20110831
  7. CALCIUM WITH VITAMIN D [Concomitant]
     Dosage: 600 MG
     Route: 048
  8. FISH OIL [Concomitant]
     Dosage: 1200 MG
     Route: 048
  9. PROMETHAZINE [Concomitant]
     Indication: NAUSEA
     Route: 048
  10. SPIRIVA [Concomitant]
     Dosage: 1 PUF
     Route: 055
     Dates: start: 20111129
  11. SEREVENT DISKUS [Concomitant]
     Dosage: 100 MCG
     Route: 055
  12. DAILY MULTIPLE VITAMINS [Concomitant]
     Route: 048
  13. FORADIL [Concomitant]
     Route: 055
     Dates: start: 20111129

REACTIONS (3)
  - Gastrointestinal haemorrhage [Fatal]
  - Anaemia [Unknown]
  - Gastritis [Unknown]
